FAERS Safety Report 9241913 (Version 4)
Quarter: 2013Q2

REPORT INFORMATION
  Report Type: Report from Study
  Country: CN (occurrence: CN)
  Receive Date: 20130419
  Receipt Date: 20130522
  Transmission Date: 20140414
  Serious: Yes (Death, Life-Threatening, Other)
  Sender: FDA-Public Use
  Company Number: CN-GENZYME-THYM-1003756

PATIENT
  Age: 13 Year
  Sex: Male
  Weight: 73 kg

DRUGS (3)
  1. THYMOGLOBULINE [Suspect]
     Indication: APLASTIC ANAEMIA
     Dosage: 25 MG, QD (ON FIRST DAY)
     Route: 042
     Dates: start: 20130307, end: 20130307
  2. THYMOGLOBULINE [Suspect]
     Dosage: 1225 MG, UNK
     Route: 042
     Dates: start: 20130308, end: 20130315
  3. CICLOSPORIN [Suspect]
     Indication: APLASTIC ANAEMIA
     Dosage: 0.1 G, BID
     Route: 048
     Dates: start: 20130307

REACTIONS (10)
  - Cardiac arrest [Fatal]
  - Respiratory failure [Fatal]
  - Septic shock [Fatal]
  - Lung infection [Fatal]
  - Enterococcal sepsis [Fatal]
  - Soft tissue infection [Fatal]
  - Soft tissue infection [Fatal]
  - Perineal infection [Fatal]
  - Anaphylactic reaction [Recovered/Resolved]
  - Diarrhoea [Fatal]
